FAERS Safety Report 7911379-8 (Version None)
Quarter: 2011Q4

REPORT INFORMATION
  Report Type: 
  Country: None (occurrence: None)
  Receive Date: 20111114
  Receipt Date: 20111104
  Transmission Date: 20120403
  Serious: Yes (Hospitalization, Other)
  Sender: FDA-Public Use
  Company Number: US-ASTELLAS-2011US006868

PATIENT
  Age: 53 Year
  Sex: Female
  Weight: 69 kg

DRUGS (58)
  1. AVASTIN [Concomitant]
     Dosage: 1147 MG, UNKNOWN/D
     Route: 042
     Dates: start: 20110711
  2. AVASTIN [Concomitant]
     Dosage: 1136 MG, UNKNOWN/D
     Route: 042
     Dates: start: 20110807
  3. EMERGEN-C [Concomitant]
     Indication: PRODUCT USED FOR UNKNOWN INDICATION
     Dosage: 1 DF, UID/QD
     Route: 048
     Dates: start: 20101108, end: 20110929
  4. TUMS E-X [Concomitant]
     Indication: MINERAL SUPPLEMENTATION
     Dosage: 750 MG, BID
     Route: 048
     Dates: start: 20100311
  5. ZOFRAN [Concomitant]
     Indication: VOMITING
  6. ERLOTINIB HYDROCHLORIDE [Suspect]
     Indication: NON-SMALL CELL LUNG CANCER
     Dosage: 150 MG, UID/QD
     Route: 048
     Dates: start: 20090710, end: 20111007
  7. LORTAB [Suspect]
     Indication: PRODUCT USED FOR UNKNOWN INDICATION
     Dosage: UNK
     Route: 065
  8. ALIMTA [Concomitant]
     Dosage: 960 MG, UNKNOWN/D
     Route: 042
     Dates: start: 20110807
  9. AVASTIN [Concomitant]
     Dosage: 1306 MG, UNKNOWN/D
     Route: 042
     Dates: start: 20110114
  10. AVASTIN [Concomitant]
     Dosage: 1280 MG, UNKNOWN/D
     Route: 042
     Dates: start: 20110226
  11. AVASTIN [Concomitant]
     Dosage: 1080 MG, UNKNOWN/D
     Route: 042
     Dates: start: 20110923
  12. CARBOPLATIN [Concomitant]
     Dosage: 630 MG, UNKNOWN/D
     Route: 042
     Dates: start: 20110617
  13. IMODIUM MULTI-SYMPTOM RELIEF [Concomitant]
     Indication: PRODUCT USED FOR UNKNOWN INDICATION
     Dosage: 2 DF, PRN
     Route: 048
     Dates: start: 20090903
  14. ALIMTA [Concomitant]
     Dosage: 1000 MG, UNKNOWN/D
     Route: 042
     Dates: start: 20110502
  15. AVASTIN [Concomitant]
     Dosage: 1197 MG, UNKNOWN/D
     Route: 042
     Dates: start: 20110617
  16. BENADRYL [Concomitant]
     Indication: PRODUCT USED FOR UNKNOWN INDICATION
     Dosage: 1 DF, PRN
     Route: 048
     Dates: start: 20101108
  17. DEXAMETHASONE [Concomitant]
     Indication: PRODUCT USED FOR UNKNOWN INDICATION
     Dosage: 4 MG, BID
     Route: 048
     Dates: start: 20101223, end: 20110924
  18. NEXIUM [Concomitant]
     Indication: DYSPEPSIA
     Dosage: 40 MG, UNKNOWN/D
     Route: 048
     Dates: start: 20081117
  19. ERLOTINIB HYDROCHLORIDE [Suspect]
     Dosage: UNK MG, UID/QD
     Route: 048
     Dates: start: 20111010
  20. ALIMTA [Concomitant]
     Dosage: 1025 MG, UNKNOWN/D
     Route: 042
     Dates: start: 20110204
  21. ALIMTA [Concomitant]
     Dosage: 1025 MG, UNKNOWN/D
     Route: 042
     Dates: start: 20110226
  22. ALIMTA [Concomitant]
     Dosage: 995 MG, UNKNOWN/D
     Route: 042
     Dates: start: 20110527
  23. AVASTIN [Concomitant]
     Indication: NON-SMALL CELL LUNG CANCER
     Dosage: 1328 MG, UNKNOWN/D
     Route: 042
     Dates: start: 20101223
  24. CARBOPLATIN [Concomitant]
     Dosage: 740 MG, UNKNOWN/D
     Route: 042
     Dates: start: 20110411
  25. CARBOPLATIN [Concomitant]
     Dosage: 640 MG, UNKNOWN/D
     Route: 042
     Dates: start: 20110711
  26. NAPROXEN (ALEVE) [Concomitant]
     Indication: PRODUCT USED FOR UNKNOWN INDICATION
     Dosage: 1 DF, BID
     Route: 048
     Dates: start: 20100702
  27. EMLA [Concomitant]
     Indication: LOCAL ANAESTHESIA
     Dosage: UNK
     Route: 061
     Dates: start: 20110524, end: 20110923
  28. PROCHLORPERAZINE [Concomitant]
     Indication: NAUSEA
     Dosage: 10 MG, Q6 HOURS
     Route: 048
     Dates: start: 20101223, end: 20110901
  29. ANTIBIOTICS [Suspect]
     Indication: PRODUCT USED FOR UNKNOWN INDICATION
     Dosage: UNK
     Route: 065
  30. VICODIN [Suspect]
     Indication: PAIN
     Dosage: 5/500 MG UNK
     Route: 048
     Dates: start: 20101210, end: 20111004
  31. CARBOPLATIN [Concomitant]
     Dosage: 702 MG, UNKNOWN/D
     Route: 042
     Dates: start: 20110204
  32. CARBOPLATIN [Concomitant]
     Dosage: 738 MG, UNKNOWN/D
     Route: 042
     Dates: start: 20110226
  33. CARBOPLATIN [Concomitant]
     Dosage: 647 MG, UNKNOWN/D
     Route: 042
     Dates: start: 20110321
  34. CARBOPLATIN [Concomitant]
     Dosage: 648 MG, UNKNOWN/D
     Route: 042
     Dates: start: 20110502
  35. LEXAPRO [Concomitant]
     Indication: PRODUCT USED FOR UNKNOWN INDICATION
     Dosage: 20 MG, UID/QD
     Route: 048
     Dates: start: 20090122
  36. MAGNESIUM OXIDE [Concomitant]
     Indication: BLOOD MAGNESIUM DECREASED
     Dosage: 1 DF, TID
     Route: 048
     Dates: start: 20110711
  37. MULTI-VITAMIN [Concomitant]
     Indication: PRODUCT USED FOR UNKNOWN INDICATION
     Dosage: 1 MG, UID/QD
     Route: 048
     Dates: start: 20090122
  38. PROCHLORPERAZINE [Concomitant]
     Indication: VOMITING
  39. ALIMTA [Concomitant]
     Indication: NON-SMALL CELL LUNG CANCER
     Dosage: 1040 MG, UNKNOWN/D
     Route: 042
     Dates: start: 20101223, end: 20110923
  40. ALIMTA [Concomitant]
     Dosage: 1010 MG, UNKNOWN/D
     Route: 042
     Dates: start: 20110321
  41. ALIMTA [Concomitant]
     Dosage: 985 MG, UNKNOWN/D
     Route: 042
     Dates: start: 20110617
  42. ALIMTA [Concomitant]
     Dosage: 975 MG, UNKNOWN/D
     Route: 042
     Dates: start: 20110711
  43. AVASTIN [Concomitant]
     Dosage: 1340 MG, UNKNOWN/D
     Route: 042
     Dates: start: 20110411
  44. CARBOPLATIN [Concomitant]
     Indication: NON-SMALL CELL LUNG CANCER
     Dosage: 900 MG, UNKNOWN/D
     Route: 042
     Dates: start: 20101223
  45. RADIATION THERAPY [Suspect]
     Indication: METASTASES TO CENTRAL NERVOUS SYSTEM
     Dosage: 35 GY IN 14 FRACTIONS, UNKNOWN/D
     Route: 065
     Dates: start: 20090720, end: 20090806
  46. AVASTIN [Concomitant]
     Dosage: 1292 MG, UNKNOWN/D
     Route: 042
     Dates: start: 20110204
  47. AVASTIN [Concomitant]
     Dosage: 1232 MG, UNKNOWN/D
     Route: 042
     Dates: start: 20110502
  48. CARBOPLATIN [Concomitant]
     Dosage: 746 MG, UNKNOWN/D
     Route: 042
     Dates: start: 20110114
  49. CARBOPLATIN [Concomitant]
     Dosage: 648 MG, UNKNOWN/D
     Route: 042
     Dates: start: 20110527
  50. CARBOPLATIN [Concomitant]
     Dosage: 594 MG, UNKNOWN/D
     Route: 042
     Dates: start: 20110807
  51. SUDAFED 12 HOUR [Concomitant]
     Indication: HYPERSENSITIVITY
     Dosage: 1 DF, PRN
     Route: 048
     Dates: start: 20100730
  52. ALIMTA [Concomitant]
     Dosage: 1030 MG, UNKNOWN/D
     Route: 042
     Dates: start: 20110114
  53. ALIMTA [Concomitant]
     Dosage: 1040 MG, UNKNOWN/D
     Route: 042
     Dates: start: 20110411
  54. ALIMTA [Concomitant]
     Dosage: 935 MG, UNKNOWN/D
     Route: 042
     Dates: start: 20110923
  55. AVASTIN [Concomitant]
     Dosage: 1260 MG, UNKNOWN/D
     Route: 042
     Dates: start: 20110321
  56. AVASTIN [Concomitant]
     Dosage: 1223 MG, UNKNOWN/D
     Route: 042
     Dates: start: 20110527
  57. SENNA S [Concomitant]
     Indication: PRODUCT USED FOR UNKNOWN INDICATION
     Dosage: 1 DF, QHS
     Route: 048
     Dates: start: 20110114
  58. ZOFRAN [Concomitant]
     Indication: NAUSEA
     Dosage: 8 MG, PRN
     Route: 048
     Dates: start: 20101223

REACTIONS (11)
  - PLEURAL EFFUSION [None]
  - ASPARTATE AMINOTRANSFERASE INCREASED [None]
  - ILEUS [None]
  - MUSCULOSKELETAL PAIN [None]
  - ALOPECIA [None]
  - EMBOLISM ARTERIAL [None]
  - CARDIAC MURMUR [None]
  - ALANINE AMINOTRANSFERASE INCREASED [None]
  - PERICARDIAL EFFUSION [None]
  - CONSTIPATION [None]
  - FATIGUE [None]
